FAERS Safety Report 9967452 (Version 1)
Quarter: 2014Q1

REPORT INFORMATION
  Report Type: Report from Study
  Country: US (occurrence: US)
  Receive Date: 20140305
  Receipt Date: 20140305
  Transmission Date: 20141002
  Serious: No
  Sender: FDA-Public Use
  Company Number: US-ABBVIE-13P-163-1138402-00

PATIENT
  Age: 61 Year
  Sex: Male

DRUGS (8)
  1. HUMIRA [Suspect]
     Indication: PSORIASIS
     Dosage: LOADING DOSE
     Dates: start: 201307
  2. HUMIRA [Suspect]
     Dates: start: 20130809, end: 20130809
  3. HUMIRA [Suspect]
     Indication: PSORIASIS
     Route: 058
  4. NORVASC [Concomitant]
     Indication: HYPERTENSION
  5. NAPROSYN [Concomitant]
     Indication: ABDOMINAL PAIN
  6. FISH OIL [Concomitant]
     Indication: PRODUCT USED FOR UNKNOWN INDICATION
     Dosage: 2100 MG DAILY
  7. MENS MULTIVITAMIN [Concomitant]
     Indication: SUPPLEMENTATION THERAPY
     Dosage: DAILY
  8. PRILOSEC [Concomitant]
     Indication: DYSPEPSIA

REACTIONS (5)
  - Wrong technique in drug usage process [Unknown]
  - Injection site nodule [Recovering/Resolving]
  - Psoriasis [Unknown]
  - Device malfunction [Unknown]
  - Incorrect dose administered [Unknown]
